FAERS Safety Report 13013201 (Version 1)
Quarter: 2016Q4

REPORT INFORMATION
  Report Type: Spontaneous
  Country: US (occurrence: US)
  Receive Date: 20161208
  Receipt Date: 20161208
  Transmission Date: 20170207
  Serious: Yes (Other)
  Sender: FDA-Public Use
  Company Number: None

PATIENT
  Age: 27 Year
  Sex: Female

DRUGS (8)
  1. IBRANCE [Suspect]
     Active Substance: PALBOCICLIB
     Indication: BREAST CANCER
     Dosage: IBRANCE 100MG CAP X 21D ON AND 7D OFF - PO-QD
     Route: 048
     Dates: start: 20160823
  2. VITAMIN E [Concomitant]
     Active Substance: .ALPHA.-TOCOPHEROL
  3. XGEVA [Concomitant]
     Active Substance: DENOSUMAB
  4. VITAMIN A [Concomitant]
     Active Substance: VITAMIN A
  5. VITAMIN C [Concomitant]
     Active Substance: ASCORBIC ACID
  6. ZOLADEX [Concomitant]
     Active Substance: GOSERELIN ACETATE
  7. ANASTROZOLE. [Concomitant]
     Active Substance: ANASTROZOLE
  8. FASLODEX [Concomitant]
     Active Substance: FULVESTRANT

REACTIONS (3)
  - Pneumothorax [None]
  - Drug dose omission [None]
  - Nausea [None]

NARRATIVE: CASE EVENT DATE: 20161205
